FAERS Safety Report 13480700 (Version 1)
Quarter: 2017Q2

REPORT INFORMATION
  Report Type: Report from Study
  Country: US (occurrence: US)
  Receive Date: 20170425
  Receipt Date: 20170425
  Transmission Date: 20170830
  Serious: Yes (Death)
  Sender: FDA-Public Use
  Company Number: US-ACTELION-A-US2016-144585

PATIENT
  Age: 65 Year
  Sex: Female
  Weight: 52.61 kg

DRUGS (3)
  1. LETAIRIS [Concomitant]
     Active Substance: AMBRISENTAN
  2. UPTRAVI [Suspect]
     Active Substance: SELEXIPAG
     Indication: PULMONARY ARTERIAL HYPERTENSION
     Dosage: 200 MCG, BID
     Route: 048
     Dates: start: 20161012
  3. SILDENAFIL. [Concomitant]
     Active Substance: SILDENAFIL

REACTIONS (14)
  - Headache [Recovering/Resolving]
  - Death [Fatal]
  - Eye pain [Recovering/Resolving]
  - Myalgia [Recovering/Resolving]
  - Tinnitus [Unknown]
  - Eye pain [Unknown]
  - Dyspnoea [Unknown]
  - Cardiac disorder [Unknown]
  - Nausea [Unknown]
  - Peripheral coldness [Unknown]
  - Poor quality sleep [Unknown]
  - Pain in jaw [Unknown]
  - Muscle spasms [Recovering/Resolving]
  - Pain [Unknown]

NARRATIVE: CASE EVENT DATE: 20170315
